FAERS Safety Report 18430692 (Version 1)
Quarter: 2020Q4

REPORT INFORMATION
  Report Type: Spontaneous
  Country: PT (occurrence: PT)
  Receive Date: 20201027
  Receipt Date: 20201027
  Transmission Date: 20210114
  Serious: Yes (Other)
  Sender: FDA-Public Use
  Company Number: PT-ACCORD-206381

PATIENT
  Age: 45 Year
  Sex: Female
  Weight: 68 kg

DRUGS (1)
  1. DOCETAXEL ACCORD [Suspect]
     Active Substance: DOCETAXEL
     Indication: MALIGNANT PERITONEAL NEOPLASM
     Dosage: 21/21-DAY CYCLES - 1ST CYCLE
     Route: 042
     Dates: start: 20201016, end: 20201016

REACTIONS (4)
  - Dizziness [Recovered/Resolved]
  - Off label use [Unknown]
  - Flushing [Recovered/Resolved]
  - Cardiac discomfort [Recovered/Resolved]

NARRATIVE: CASE EVENT DATE: 20201016
